FAERS Safety Report 7771610-9 (Version None)
Quarter: 2011Q3

REPORT INFORMATION
  Report Type: 
  Country: None (occurrence: None)
  Receive Date: 20110922
  Receipt Date: 20110307
  Transmission Date: 20111222
  Serious: Yes (Other)
  Sender: FDA-Public Use
  Company Number: US-ASTRAZENECA-2011SE12908

PATIENT
  Age: 36 Year
  Sex: Female

DRUGS (5)
  1. NEXIUM [Concomitant]
  2. ADVAIR DISKUS 100/50 [Concomitant]
  3. PHENERGAN HCL [Concomitant]
  4. SEROQUEL XR [Suspect]
     Indication: BIPOLAR DISORDER
     Route: 048
     Dates: start: 20110201, end: 20110301
  5. ELAVIL [Concomitant]

REACTIONS (2)
  - INCORRECT DOSE ADMINISTERED [None]
  - OEDEMA PERIPHERAL [None]
